FAERS Safety Report 14727899 (Version 1)
Quarter: 2018Q2

REPORT INFORMATION
  Report Type: Spontaneous
  Country: JP (occurrence: JP)
  Receive Date: 20180406
  Receipt Date: 20180406
  Transmission Date: 20180711
  Serious: Yes (Other)
  Sender: FDA-Public Use
  Company Number: JP-B.I. PHARMACEUTICALS,INC./RIDGEFIELD-2018-NB-001791

PATIENT
  Age: 35 Year
  Sex: Male

DRUGS (1)
  1. GILOTRIF [Suspect]
     Active Substance: AFATINIB
     Indication: LUNG ADENOCARCINOMA STAGE IV
     Dosage: TAM: FORMULATION
     Route: 048

REACTIONS (5)
  - Cancer in remission [Recovering/Resolving]
  - EGFR gene mutation [Recovering/Resolving]
  - Small cell lung cancer [Recovering/Resolving]
  - Metastases to central nervous system [Recovering/Resolving]
  - Recurrent cancer [Recovering/Resolving]
